FAERS Safety Report 8075423-2 (Version None)
Quarter: 2012Q1

REPORT INFORMATION
  Report Type: 
  Country: None (occurrence: None)
  Receive Date: 20120127
  Receipt Date: 20120120
  Transmission Date: 20120608
  Serious: Yes (Hospitalization, Other)
  Sender: FDA-Public Use
  Company Number: KR-ABBOTT-12P-090-0892964-00

PATIENT
  Sex: Female
  Weight: 54 kg

DRUGS (3)
  1. MEDICATION FOR ARTHRITIS [Concomitant]
     Indication: RHEUMATOID ARTHRITIS
     Route: 048
  2. HUMIRA [Suspect]
     Indication: RHEUMATOID ARTHRITIS
     Route: 058
     Dates: start: 20110701, end: 20111001
  3. HUMIRA [Suspect]
     Route: 058
     Dates: start: 20111218

REACTIONS (1)
  - TENDON INJURY [None]
